FAERS Safety Report 9661013 (Version 2)
Quarter: 2013Q4

REPORT INFORMATION
  Report Type: Report from Study
  Country: CA (occurrence: CA)
  Receive Date: 20131031
  Receipt Date: 20131031
  Transmission Date: 20140711
  Serious: Yes (Other)
  Sender: FDA-Public Use
  Company Number: CA-BAYER-2013-119367

PATIENT
  Age: 63 Year
  Sex: Male
  Weight: 80.7 kg

DRUGS (3)
  1. STIVARGA [Suspect]
     Indication: COLORECTAL CANCER METASTATIC
     Dosage: 160 MG, QD
     Route: 048
     Dates: start: 20130927, end: 20131006
  2. LISINOPRIL [Concomitant]
     Indication: HYPERTENSION
     Dosage: 5 MG, QD
     Route: 048
  3. HCT [Concomitant]
     Indication: HYPERTENSION
     Dosage: 12.5 MG, QD
     Route: 048

REACTIONS (11)
  - Dehydration [Recovered/Resolved]
  - Pyrexia [None]
  - Blood pressure increased [None]
  - Plantar erythema [None]
  - Abdominal pain [Not Recovered/Not Resolved]
  - Dysphonia [None]
  - Rash [Recovered/Resolved]
  - Diarrhoea [None]
  - Blood pressure decreased [Recovered/Resolved]
  - Fatigue [Recovering/Resolving]
  - Constipation [None]
